FAERS Safety Report 6495000-4 (Version None)
Quarter: 2009Q4

REPORT INFORMATION
  Report Type: 
  Country: None (occurrence: None)
  Receive Date: 20091214
  Receipt Date: 20090502
  Transmission Date: 20100525
  Serious: Yes (Hospitalization)
  Sender: FDA-Public Use
  Company Number: US-BRISTOL-MYERS SQUIBB COMPANY-14594055

PATIENT
  Age: 45 Year
  Sex: Male
  Weight: 82 kg

DRUGS (3)
  1. ABILIFY [Suspect]
     Indication: BIPOLAR DISORDER
     Dosage: 3 YEARS AGO,ABILIFY 5MG WAS TAKEN FOR ONE MONTH.
     Dates: start: 20090414
  2. LAMICTAL [Concomitant]
  3. AVODART [Concomitant]

REACTIONS (6)
  - ABNORMAL BEHAVIOUR [None]
  - ACCIDENTAL EXPOSURE [None]
  - CHROMATURIA [None]
  - DELIRIUM [None]
  - DYSURIA [None]
  - INSOMNIA [None]
